FAERS Safety Report 17362306 (Version 2)
Quarter: 2020Q1

REPORT INFORMATION
  Report Type: Spontaneous
  Country: DE (occurrence: DE)
  Receive Date: 20200203
  Receipt Date: 20200205
  Transmission Date: 20200409
  Serious: Yes (Hospitalization)
  Sender: FDA-Public Use
  Company Number: DE-MYLANLABS-2020M1011499

PATIENT
  Age: 70 Year
  Sex: Male
  Weight: 62 kg

DRUGS (8)
  1. BUDESONIDE. [Suspect]
     Active Substance: BUDESONIDE
     Indication: PRODUCT USED FOR UNKNOWN INDICATION
     Dosage: PAUSIERT
  2. AMLODIPIN                          /00972401/ [Concomitant]
     Active Substance: AMLODIPINE BESYLATE
     Dosage: 10 MG, 0.5-0-0-0
     Route: 048
  3. ROFLUMILAST. [Concomitant]
     Active Substance: ROFLUMILAST
     Dosage: UNK, QD (1-0-0-0)
     Route: 048
  4. LORAZEPAM. [Concomitant]
     Active Substance: LORAZEPAM
     Dosage: 0.5 MG, 0-0-2-0
     Route: 048
  5. DUTASTERIDE. [Concomitant]
     Active Substance: DUTASTERIDE
     Dosage: UNK, QD (1-0-0-0)
     Route: 048
  6. ACETYLCYSTEINE. [Concomitant]
     Active Substance: ACETYLCYSTEINE
     Dosage: 600 MG, 1-0-0-0
     Route: 048
  7. LEVOTHYROXIN [Concomitant]
     Active Substance: LEVOTHYROXINE
     Dosage: 25 MILLIGRAM, QD (25 MG, 1-0-0-0)
     Route: 048
  8. MIRTAZAPIN [Concomitant]
     Active Substance: MIRTAZAPINE
     Dosage: 7.5 MILLIGRAM, QD (7.5 MG, 0-0-1-0)
     Route: 048

REACTIONS (2)
  - Acute respiratory failure [Unknown]
  - Product prescribing error [Unknown]

NARRATIVE: CASE EVENT DATE: 20151209
